FAERS Safety Report 10715832 (Version 1)
Quarter: 2015Q1

REPORT INFORMATION
  Report Type: Spontaneous
  Country: JP (occurrence: JP)
  Receive Date: 20150116
  Receipt Date: 20150116
  Transmission Date: 20150721
  Serious: Yes (Other)
  Sender: FDA-Public Use
  Company Number: JP-CIPLA LTD.-2015JP00278

PATIENT

DRUGS (4)
  1. 5-FLUROURACIL [Suspect]
     Active Substance: FLUOROURACIL
     Indication: LARGE INTESTINE POLYP
     Dosage: 400/M2/46 H
  2. FOLINIC ACID [Suspect]
     Active Substance: LEUCOVORIN
     Indication: LARGE INTESTINE POLYP
  3. IRINOTECAN [Suspect]
     Active Substance: IRINOTECAN
     Indication: LARGE INTESTINE POLYP
  4. 5-FLUROURACIL [Suspect]
     Active Substance: FLUOROURACIL
     Dosage: 2400/M2/46H

REACTIONS (1)
  - Hyperammonaemic encephalopathy [Unknown]
